FAERS Safety Report 7563535-9 (Version None)
Quarter: 2011Q2

REPORT INFORMATION
  Report Type: 
  Country: None (occurrence: None)
  Receive Date: 20110622
  Receipt Date: 20110616
  Transmission Date: 20111010
  Serious: Yes (Other)
  Sender: FDA-Public Use
  Company Number: US-ABBOTT-11P-163-0733560-00

PATIENT
  Sex: Female
  Weight: 63.6 kg

DRUGS (1)
  1. HUMIRA [Suspect]
     Indication: CROHN'S DISEASE
     Dosage: FIRST DOSE
     Dates: start: 20110616, end: 20110616

REACTIONS (5)
  - PALLOR [None]
  - EYE MOVEMENT DISORDER [None]
  - TREMOR [None]
  - MYDRIASIS [None]
  - SEIZURE LIKE PHENOMENA [None]
